FAERS Safety Report 5145653-8 (Version None)
Quarter: 2006Q4

REPORT INFORMATION
  Report Type: 
  Country: None (occurrence: None)
  Receive Date: 20061102
  Receipt Date: 20061025
  Transmission Date: 20070319
  Serious: Yes (Other)
  Sender: FDA-Public Use
  Company Number: FABR-11550

PATIENT
  Age: 27 Year
  Sex: Male
  Weight: 61.5 kg

DRUGS (5)
  1. FABRAZYME [Suspect]
     Indication: FABRY'S DISEASE
     Dosage: 1 MG/KG Q2WKS IV
     Route: 042
     Dates: start: 20030701, end: 20060508
  2. IBUPROFEN [Concomitant]
  3. KETOROLAC TROMETHAMINE [Concomitant]
  4. LORATADINE [Concomitant]
  5. DEXAMETHASONE TAB [Concomitant]

REACTIONS (8)
  - ANTIBODY TEST POSITIVE [None]
  - DYSPNOEA [None]
  - ERYTHEMA [None]
  - FACE OEDEMA [None]
  - FATIGUE [None]
  - FLUSHING [None]
  - PALPITATIONS [None]
  - PARAESTHESIA [None]
